FAERS Safety Report 18095629 (Version 2)
Quarter: 2020Q3

REPORT INFORMATION
  Report Type: Spontaneous
  Country: DK (occurrence: DK)
  Receive Date: 20200730
  Receipt Date: 20200804
  Transmission Date: 20201103
  Serious: Yes (Hospitalization, Other)
  Sender: FDA-Public Use
  Company Number: DK-MYLANLABS-2020M1067994

PATIENT
  Age: 39 Year
  Sex: Female

DRUGS (1)
  1. LEPONEX [Suspect]
     Active Substance: CLOZAPINE
     Indication: SCHIZOPHRENIA
     Dosage: STRENGTH: UNKNOWN DOSE: VARIATION. AUG2015 62,5 MG/DAILY
     Route: 048
     Dates: start: 1998, end: 201703

REACTIONS (12)
  - Tremor [Unknown]
  - Serotonin syndrome [Unknown]
  - Gastrointestinal hypermotility [Unknown]
  - Dysphagia [Unknown]
  - Autism spectrum disorder [Unknown]
  - Abdominal pain upper [Unknown]
  - Constipation [Recovered/Resolved]
  - Diarrhoea [Recovered/Resolved]
  - Body temperature abnormal [Unknown]
  - Liver injury [Unknown]
  - Nervous system disorder [Unknown]
  - Renal injury [Unknown]

NARRATIVE: CASE EVENT DATE: 201508
